FAERS Safety Report 7137899-4 (Version None)
Quarter: 2010Q4

REPORT INFORMATION
  Report Type: 
  Country: None (occurrence: None)
  Receive Date: 20101103
  Receipt Date: 20100903
  Transmission Date: 20110411
  Serious: Yes (Other)
  Sender: FDA-Public Use
  Company Number: 2010S1001313

PATIENT

DRUGS (2)
  1. CUBICIN [Suspect]
     Indication: ENDOCARDITIS
     Dosage: 6 MG/KG; IV
     Route: 042
     Dates: start: 20100712, end: 20100727
  2. TAZOCIN [Concomitant]

REACTIONS (3)
  - EOSINOPHILIA [None]
  - PYREXIA [None]
  - RASH [None]
